FAERS Safety Report 11120067 (Version 1)
Quarter: 2015Q2

REPORT INFORMATION
  Report Type: Spontaneous
  Country: US (occurrence: US)
  Receive Date: 20150518
  Receipt Date: 20150518
  Transmission Date: 20150821
  Serious: No
  Sender: FDA-Public Use
  Company Number: US-BAUSCH-BL-2015-003527

PATIENT
  Age: 68 Year
  Sex: Female
  Weight: 86.26 kg

DRUGS (4)
  1. FLEXERIL [Concomitant]
     Active Substance: CYCLOBENZAPRINE HYDROCHLORIDE
     Indication: PRODUCT USED FOR UNKNOWN INDICATION
     Dates: start: 20150212
  2. ELIDEL [Suspect]
     Active Substance: PIMECROLIMUS
     Indication: SKIN EXFOLIATION
  3. ELIDEL [Suspect]
     Active Substance: PIMECROLIMUS
     Indication: DRY SKIN
     Route: 061
     Dates: start: 20150213, end: 20150213
  4. ELIDEL [Suspect]
     Active Substance: PIMECROLIMUS
     Indication: PRURITUS

REACTIONS (4)
  - Application site vesicles [Recovering/Resolving]
  - Eyelid irritation [Unknown]
  - Application site laceration [Recovered/Resolved]
  - Eyelid oedema [Recovering/Resolving]

NARRATIVE: CASE EVENT DATE: 20150213
